FAERS Safety Report 11139528 (Version 1)
Quarter: 2015Q2

REPORT INFORMATION
  Report Type: Spontaneous
  Country: US (occurrence: US)
  Receive Date: 20150527
  Receipt Date: 20150527
  Transmission Date: 20150821
  Serious: Yes (Other)
  Sender: FDA-Public Use
  Company Number: US-PFIZER INC-2015174030

PATIENT
  Age: 12 Year
  Sex: Male
  Weight: 45.81 kg

DRUGS (2)
  1. AZITHROMYCIN [Suspect]
     Active Substance: AZITHROMYCIN ANHYDROUS
     Dosage: 250 MG ONE TABLET AFTER THAT
     Dates: start: 20140408, end: 20140408
  2. AZITHROMYCIN [Suspect]
     Active Substance: AZITHROMYCIN ANHYDROUS
     Indication: ACUTE SINUSITIS
     Dosage: 250 MG, 2 TABLETS ON THE FIRST DAY
     Dates: start: 20140407, end: 20140407

REACTIONS (8)
  - Diarrhoea [Recovered/Resolved]
  - Nausea [Not Recovered/Not Resolved]
  - Vomiting [Recovered/Resolved]
  - Dyspepsia [Not Recovered/Not Resolved]
  - Abdominal pain [Not Recovered/Not Resolved]
  - Complex regional pain syndrome [Unknown]
  - Eating disorder [Not Recovered/Not Resolved]
  - Product quality issue [Unknown]

NARRATIVE: CASE EVENT DATE: 201404
